FAERS Safety Report 7648489-9 (Version None)
Quarter: 2011Q3

REPORT INFORMATION
  Report Type: 
  Country: None (occurrence: None)
  Receive Date: 20110801
  Receipt Date: 20110727
  Transmission Date: 20111222
  Serious: Yes (Other)
  Sender: FDA-Public Use
  Company Number: US-AMGEN-USASP2011038331

PATIENT
  Age: 18 Year
  Sex: Female

DRUGS (2)
  1. NPLATE [Suspect]
     Indication: IDIOPATHIC THROMBOCYTOPENIC PURPURA
     Dates: start: 20100702, end: 20110105
  2. CORTICOSTEROIDS [Concomitant]

REACTIONS (2)
  - VIRAL INFECTION [None]
  - THROMBOCYTOPENIA [None]
